FAERS Safety Report 13510824 (Version 1)
Quarter: 2017Q2

REPORT INFORMATION
  Report Type: Spontaneous
  Country: LB (occurrence: LB)
  Receive Date: 20170503
  Receipt Date: 20170503
  Transmission Date: 20170830
  Serious: Yes (Hospitalization, Other)
  Sender: FDA-Public Use
  Company Number: LB-ALEXION PHARMACEUTICALS INC.-A201704541

PATIENT
  Age: 21 Month
  Sex: Male
  Weight: 10.5 kg

DRUGS (1)
  1. SOLIRIS [Suspect]
     Active Substance: ECULIZUMAB
     Indication: HAEMOLYTIC URAEMIC SYNDROME
     Dosage: 300 MG, Q2W
     Route: 042

REACTIONS (31)
  - Alpha haemolytic streptococcal infection [Unknown]
  - Blood lactate dehydrogenase increased [Unknown]
  - Angioedema [Unknown]
  - Haemoglobin decreased [Unknown]
  - Mitochondrial encephalomyopathy [Unknown]
  - Anuria [Unknown]
  - Viral infection [Unknown]
  - Hydrocephalus [Unknown]
  - Myelodysplastic syndrome [Unknown]
  - Decreased activity [Unknown]
  - Hyperammonaemia [Unknown]
  - Blood calcium decreased [Unknown]
  - Proteinuria [Unknown]
  - Rash maculo-papular [Unknown]
  - Otitis media acute [Unknown]
  - Haematuria [Unknown]
  - Serum ferritin increased [Unknown]
  - Bronchial wall thickening [Unknown]
  - Liver disorder [Unknown]
  - Blood creatinine increased [Unknown]
  - Blood cholesterol increased [Unknown]
  - Hypoalbuminaemia [Unknown]
  - Splenomegaly [Recovered/Resolved]
  - Histiocytosis haematophagic [Unknown]
  - Status epilepticus [Unknown]
  - Platelet count decreased [Unknown]
  - Tonsillar erythema [Unknown]
  - Hypophagia [Unknown]
  - Oliguria [Unknown]
  - Electrolyte imbalance [Unknown]
  - Complement factor C3 decreased [Unknown]

NARRATIVE: CASE EVENT DATE: 201704
